FAERS Safety Report 21417994 (Version 4)
Quarter: 2022Q4

REPORT INFORMATION
  Report Type: Report from Study
  Country: SE (occurrence: SE)
  Receive Date: 20221006
  Receipt Date: 20221118
  Transmission Date: 20230113
  Serious: Yes (Hospitalization)
  Sender: FDA-Public Use
  Company Number: SE-JNJFOC-20220962196

PATIENT
  Age: 68 Year
  Sex: Male
  Weight: 79 kg

DRUGS (10)
  1. TECLISTAMAB [Suspect]
     Active Substance: TECLISTAMAB
     Indication: Plasma cell myeloma refractory
     Dosage: MOST RECENT DOSE ON 03-OCT-2022
     Route: 058
     Dates: start: 20220928
  2. TECLISTAMAB [Suspect]
     Active Substance: TECLISTAMAB
     Dosage: MOST RECENT DOSE ON 20-OCT-2022
     Route: 058
     Dates: start: 20221007
  3. DARATUMUMAB [Suspect]
     Active Substance: DARATUMUMAB
     Indication: Plasma cell myeloma refractory
     Dosage: MOST RECENT DOSE ON 20-OCT-2022
     Route: 058
     Dates: start: 20220927
  4. ACYCLOVIR [Concomitant]
     Active Substance: ACYCLOVIR
     Indication: Antiviral prophylaxis
     Route: 048
     Dates: start: 20200306
  5. ATORVASTATIN [Concomitant]
     Active Substance: ATORVASTATIN
     Indication: Hyperlipidaemia
     Route: 048
     Dates: start: 20220103, end: 20220927
  6. HYPROSAN [Concomitant]
     Indication: Dry eye
     Route: 047
     Dates: start: 20220817
  7. OCULENTUM SIMPLEX [Concomitant]
     Indication: Dry eye
     Route: 047
     Dates: start: 20220817
  8. BACTRIM [Concomitant]
     Active Substance: SULFAMETHOXAZOLE\TRIMETHOPRIM
     Indication: Antifungal prophylaxis
     Route: 048
     Dates: start: 20220927
  9. KETOPROFEN [Concomitant]
     Active Substance: KETOPROFEN
     Indication: Skin reaction
     Route: 061
     Dates: start: 20221007
  10. KETOPROFEN [Concomitant]
     Active Substance: KETOPROFEN
     Indication: Erythema

REACTIONS (2)
  - Dyspnoea [Recovered/Resolved]
  - Pyrexia [Recovered/Resolved]

NARRATIVE: CASE EVENT DATE: 20220929
